FAERS Safety Report 6789685-2 (Version None)
Quarter: 2010Q2

REPORT INFORMATION
  Report Type: 
  Country: None (occurrence: None)
  Receive Date: 20100624
  Receipt Date: 20100330
  Transmission Date: 20101027
  Serious: Yes (Other)
  Sender: FDA-Public Use
  Company Number: US-ASTRAZENECA-2006UW07624

PATIENT
  Age: 52 Year
  Sex: Female
  Weight: 117 kg

DRUGS (22)
  1. SEROQUEL [Suspect]
     Indication: BIPOLAR DISORDER
     Dosage: 100 TO 300 MG
     Route: 048
     Dates: start: 19991201, end: 20031201
  2. SEROQUEL [Suspect]
     Dosage: 100 MG TO 200 MG
     Route: 048
     Dates: start: 19991218
  3. SEROQUEL [Suspect]
     Route: 048
     Dates: start: 20000119
  4. SEROQUEL [Suspect]
     Dosage: 100 TO 300 MG PO
     Route: 048
     Dates: start: 20040401, end: 20050901
  5. ABILIFY [Suspect]
     Dosage: 5 TO 10 MG
     Dates: start: 20050901, end: 20051001
  6. ABILIFY [Suspect]
     Dosage: 5 MG TO 10 MG
     Route: 048
     Dates: start: 20050919
  7. GEODON [Suspect]
     Dosage: 40 MG TO 120 MG
     Route: 048
     Dates: start: 20040102
  8. RISPERDAL [Suspect]
     Dosage: 1 MG TO 2 MG
     Route: 048
     Dates: start: 19950711
  9. CLONAZEPAM [Concomitant]
     Route: 048
     Dates: start: 19991218
  10. TOPAMAX [Concomitant]
     Route: 048
     Dates: start: 19991230
  11. WELLBUTRIN [Concomitant]
     Route: 048
     Dates: start: 19991231
  12. ZOLOFT [Concomitant]
     Route: 048
     Dates: start: 20040102
  13. ASPIRIN [Concomitant]
     Route: 048
     Dates: start: 20030924
  14. ALBUTEROL [Concomitant]
     Route: 048
     Dates: start: 20051108
  15. LIPITOR [Concomitant]
     Route: 048
     Dates: start: 20050606
  16. RITALIN [Concomitant]
     Route: 048
  17. CELEXA [Concomitant]
     Route: 048
     Dates: start: 20050606
  18. SINGULAIR [Concomitant]
     Route: 048
     Dates: start: 20050722
  19. SYNTHROID [Concomitant]
     Dates: start: 19990915
  20. PREDNISONE [Concomitant]
     Dates: start: 20060314
  21. EFFEXOR XR [Concomitant]
     Dates: start: 20060314
  22. ATIVAN [Concomitant]
     Dates: start: 20060314

REACTIONS (7)
  - DIABETES MELLITUS [None]
  - DIABETIC NEPHROPATHY [None]
  - DIABETIC NEUROPATHY [None]
  - METABOLIC SYNDROME [None]
  - PULMONARY SARCOIDOSIS [None]
  - SARCOIDOSIS [None]
  - TYPE 2 DIABETES MELLITUS [None]
